FAERS Safety Report 14756563 (Version 2)
Quarter: 2018Q2

REPORT INFORMATION
  Report Type: Spontaneous
  Country: DE (occurrence: DE)
  Receive Date: 20180413
  Receipt Date: 20180424
  Transmission Date: 20180711
  Serious: No
  Sender: FDA-Public Use
  Company Number: DE-UCBSA-2018016111

PATIENT
  Sex: Female

DRUGS (4)
  1. LEVETIRACETAM. [Suspect]
     Active Substance: LEVETIRACETAM
     Indication: PRODUCT USED FOR UNKNOWN INDICATION
     Dosage: UNK
  2. ZONISAMIDE. [Concomitant]
     Active Substance: ZONISAMIDE
     Indication: PRODUCT USED FOR UNKNOWN INDICATION
  3. VALPROATE [Suspect]
     Active Substance: VALPROIC ACID
     Indication: PRODUCT USED FOR UNKNOWN INDICATION
     Dosage: UNK
  4. BRIVIACT [Suspect]
     Active Substance: BRIVARACETAM
     Indication: EPILEPSY
     Dosage: UNK

REACTIONS (2)
  - Lipase increased [Unknown]
  - Amylase increased [Unknown]
